FAERS Safety Report 4899036-6 (Version None)
Quarter: 2006Q1

REPORT INFORMATION
  Report Type: 
  Country: None (occurrence: None)
  Receive Date: 20060202
  Receipt Date: 20060123
  Transmission Date: 20060701
  Serious: Yes (Hospitalization)
  Sender: FDA-Public Use
  Company Number: US-JNJFOC-20060105383

PATIENT
  Age: 75 Year
  Sex: Female
  Weight: 68.04 kg

DRUGS (5)
  1. RISPERDAL [Suspect]
     Indication: BIPOLAR DISORDER
     Route: 048
  2. DEPAKOTE [Concomitant]
     Indication: BIPOLAR DISORDER
  3. LITHIUM [Concomitant]
     Indication: BIPOLAR DISORDER
  4. PREDNISONE [Concomitant]
     Indication: ARTERIAL DISORDER
  5. COGENTIN [Concomitant]

REACTIONS (3)
  - MOBILITY DECREASED [None]
  - SPEECH DISORDER [None]
  - WEIGHT DECREASED [None]
